FAERS Safety Report 8343858-6 (Version None)
Quarter: 2012Q2

REPORT INFORMATION
  Report Type: 
  Country: None (occurrence: None)
  Receive Date: 20120508
  Receipt Date: 20120428
  Transmission Date: 20120825
  Serious: Yes (Hospitalization, Other)
  Sender: FDA-Public Use
  Company Number: US-US-EMD SERONO, INC.-7113435

PATIENT
  Sex: Female

DRUGS (16)
  1. REBIF [Suspect]
     Route: 058
     Dates: start: 20120213
  2. CALCIUM [Concomitant]
     Indication: PRODUCT USED FOR UNKNOWN INDICATION
  3. REBIF [Suspect]
     Route: 058
     Dates: start: 20120201, end: 20120301
  4. GABAPENTIN [Concomitant]
     Indication: RESTLESS LEGS SYNDROME
  5. MULTI-VITAMIN [Concomitant]
     Indication: PRODUCT USED FOR UNKNOWN INDICATION
  6. ZOLOFT [Concomitant]
     Indication: DEPRESSION
  7. REBIF [Suspect]
     Indication: MULTIPLE SCLEROSIS
     Route: 058
     Dates: end: 20111001
  8. ASPIRIN [Concomitant]
     Indication: PRODUCT USED FOR UNKNOWN INDICATION
  9. AVAPRO [Concomitant]
     Indication: PRODUCT USED FOR UNKNOWN INDICATION
  10. VITAMIN D [Concomitant]
     Indication: PRODUCT USED FOR UNKNOWN INDICATION
  11. VITAMIN C [Concomitant]
     Indication: PRODUCT USED FOR UNKNOWN INDICATION
  12. REBIF [Suspect]
     Route: 058
     Dates: start: 20120301, end: 20120404
  13. REBIF [Suspect]
     Route: 058
     Dates: start: 20120404
  14. VITAMIN B COMPLEX CAP [Concomitant]
     Indication: PRODUCT USED FOR UNKNOWN INDICATION
  15. HUMALOG [Concomitant]
     Indication: PRODUCT USED FOR UNKNOWN INDICATION
  16. SIMVASTATIN [Concomitant]
     Indication: PRODUCT USED FOR UNKNOWN INDICATION

REACTIONS (7)
  - INFLUENZA LIKE ILLNESS [None]
  - FATIGUE [None]
  - LETHARGY [None]
  - GASTRIC BYPASS [None]
  - ALOPECIA [None]
  - MEDICAL DEVICE COMPLICATION [None]
  - CAMPYLOBACTER GASTROENTERITIS [None]
